FAERS Safety Report 13703041 (Version 1)
Quarter: 2017Q2

REPORT INFORMATION
  Report Type: Report from Study
  Country: US (occurrence: US)
  Receive Date: 20170629
  Receipt Date: 20170629
  Transmission Date: 20170830
  Serious: Yes (Other)
  Sender: FDA-Public Use
  Company Number: US-SAOL THERAPEUTICS-2017SAO01097

PATIENT
  Age: 63 Year
  Sex: Female

DRUGS (53)
  1. COMPOUNDED BACLOFEN [Suspect]
     Active Substance: BACLOFEN
     Dosage: 69.71 ?G, \DAY
     Route: 037
     Dates: start: 20110121, end: 20111229
  2. COMPOUNDED BACLOFEN [Suspect]
     Active Substance: BACLOFEN
     Dosage: 55.08 ?G, \DAY
     Route: 037
     Dates: start: 20111229, end: 20120323
  3. COMPOUNDED BACLOFEN [Suspect]
     Active Substance: BACLOFEN
     Dosage: 70.04 ?G, \DAY
     Route: 037
     Dates: start: 20130916, end: 20130923
  4. DILAUDID [Suspect]
     Active Substance: HYDROMORPHONE HYDROCHLORIDE
     Dosage: 1.101 MG, \DAY
     Route: 037
     Dates: start: 20111229, end: 20120323
  5. DILAUDID [Suspect]
     Active Substance: HYDROMORPHONE HYDROCHLORIDE
     Dosage: 1.400 MG, \DAY
     Route: 037
     Dates: start: 20130916, end: 20130923
  6. CLONIDINE. [Suspect]
     Active Substance: CLONIDINE
     Dosage: 45.03 ?G, \DAY
     Route: 037
     Dates: start: 20101104, end: 20110121
  7. CLONIDINE. [Suspect]
     Active Substance: CLONIDINE
     Dosage: 69.71 ?G, \DAY
     Route: 037
     Dates: start: 20110121, end: 20111229
  8. CLONIDINE. [Suspect]
     Active Substance: CLONIDINE
     Dosage: 98.61 ?G, \DAY
     Route: 037
     Dates: start: 20130916, end: 20130923
  9. COMPOUNDED BACLOFEN [Suspect]
     Active Substance: BACLOFEN
     Dosage: 45.03 ?G, \DAY
     Route: 037
     Dates: start: 20101104, end: 20110121
  10. COMPOUNDED BACLOFEN [Suspect]
     Active Substance: BACLOFEN
     Dosage: 80.11 ?G, \DAY
     Route: 037
     Dates: start: 20130923
  11. BUPIVICAINE [Suspect]
     Active Substance: BUPIVACAINE
     Dosage: 14.008 MG, \DAY
     Route: 037
     Dates: start: 20130916, end: 20130923
  12. CLONIDINE. [Suspect]
     Active Substance: CLONIDINE
     Dosage: 71.12 ?G, \DAY
     Route: 037
     Dates: start: 20101104, end: 20110121
  13. CLONIDINE. [Suspect]
     Active Substance: CLONIDINE
     Dosage: 70.04 ?G, \DAY
     Route: 037
     Dates: start: 20130916, end: 20130923
  14. CLONIDINE. [Suspect]
     Active Substance: CLONIDINE
     Dosage: 80.11 ?G, \DAY
     Route: 037
     Dates: start: 20130923
  15. DILAUDID [Suspect]
     Active Substance: HYDROMORPHONE HYDROCHLORIDE
     Dosage: 1.602 MG, \DAY
     Route: 037
     Dates: start: 20130923
  16. BUPIVICAINE [Suspect]
     Active Substance: BUPIVACAINE
     Dosage: 9.006 MG, \DAY
     Route: 037
     Dates: start: 20101104, end: 20110121
  17. BUPIVICAINE [Suspect]
     Active Substance: BUPIVACAINE
     Dosage: 14.224 MG, \DAY
     Route: 037
     Dates: start: 20101104, end: 20110121
  18. BUPIVICAINE [Suspect]
     Active Substance: BUPIVACAINE
     Dosage: 13.943 MG, \DAY
     Route: 037
     Dates: start: 20110121, end: 20111229
  19. BUPIVICAINE [Suspect]
     Active Substance: BUPIVACAINE
     Dosage: 16.022 MG, \DAY
     Route: 037
     Dates: start: 20130923
  20. CLONIDINE. [Suspect]
     Active Substance: CLONIDINE
     Dosage: 83.95 ?G, \DAY
     Route: 037
     Dates: start: 20111229, end: 20120802
  21. COMPOUNDED BACLOFEN [Suspect]
     Active Substance: BACLOFEN
     Dosage: 83.95 ?G, \DAY
     Route: 037
     Dates: start: 20111229, end: 20120323
  22. COMPOUNDED BACLOFEN [Suspect]
     Active Substance: BACLOFEN
     Dosage: 97.84 ?G, \DAY
     Route: 037
     Dates: start: 20120802, end: 20130916
  23. COMPOUNDED BACLOFEN [Suspect]
     Active Substance: BACLOFEN
     Dosage: 98.61 ?G, \DAY
     Dates: start: 20130916, end: 20130923
  24. COMPOUNDED BACLOFEN [Suspect]
     Active Substance: BACLOFEN
     Dosage: 109.02 ?G, \DAY
     Route: 037
     Dates: start: 20130923
  25. DILAUDID [Suspect]
     Active Substance: HYDROMORPHONE HYDROCHLORIDE
     Dosage: 0.900 MG, \DAY
     Route: 037
     Dates: start: 20101104, end: 20110121
  26. DILAUDID [Suspect]
     Active Substance: HYDROMORPHONE HYDROCHLORIDE
     Dosage: 2.180 MG, \DAY
     Route: 037
     Dates: start: 20130923
  27. BUPIVICAINE [Suspect]
     Active Substance: BUPIVACAINE
     Dosage: 19.567 MG, \DAY
     Route: 037
     Dates: start: 20120323, end: 20120802
  28. BUPIVICAINE [Suspect]
     Active Substance: BUPIVACAINE
     Dosage: 19.722 MG, \DAY
     Route: 037
     Dates: start: 20130916, end: 20130923
  29. BUPIVICAINE [Suspect]
     Active Substance: BUPIVACAINE
     Dosage: UNK
  30. CLONIDINE. [Suspect]
     Active Substance: CLONIDINE
     Dosage: 55.08 ?G, \DAY
     Route: 037
     Dates: start: 20111229, end: 20111229
  31. COMPOUNDED BACLOFEN [Suspect]
     Active Substance: BACLOFEN
     Dosage: 97.84 ?G, \DAY
     Route: 037
     Dates: start: 20120323, end: 20120802
  32. COMPOUNDED BACLOFEN [Suspect]
     Active Substance: BACLOFEN
     Dosage: 55.08 ?G, \DAY
     Route: 037
     Dates: start: 20120802, end: 20130916
  33. DILAUDID [Suspect]
     Active Substance: HYDROMORPHONE HYDROCHLORIDE
     Dosage: 1.422 MG, \DAY
     Route: 037
     Dates: start: 20101104, end: 20110121
  34. DILAUDID [Suspect]
     Active Substance: HYDROMORPHONE HYDROCHLORIDE
     Dosage: 1.394 MG, \DAY
     Dates: start: 20110121, end: 20111229
  35. DILAUDID [Suspect]
     Active Substance: HYDROMORPHONE HYDROCHLORIDE
     Dosage: 1.679 MG, \DAY
     Route: 037
     Dates: start: 20111229, end: 20120323
  36. DILAUDID [Suspect]
     Active Substance: HYDROMORPHONE HYDROCHLORIDE
     Dosage: 1.976 MG, \DAY
     Route: 037
     Dates: start: 20120323, end: 20120802
  37. DILAUDID [Suspect]
     Active Substance: HYDROMORPHONE HYDROCHLORIDE
     Dosage: 1.101 MG, \DAY
     Route: 037
     Dates: start: 20120802, end: 20130916
  38. BUPIVICAINE [Suspect]
     Active Substance: BUPIVACAINE
     Dosage: 11.015 MG, \DAY
     Dates: start: 20120802, end: 20130916
  39. BUPIVICAINE [Suspect]
     Active Substance: BUPIVACAINE
     Dosage: 19.567 MG, \DAY
     Route: 037
     Dates: start: 20120802, end: 20130916
  40. CLONIDINE. [Suspect]
     Active Substance: CLONIDINE
     Dosage: 97.84 ?G, \DAY
     Route: 037
     Dates: start: 20120802, end: 20130916
  41. DILAUDID [Suspect]
     Active Substance: HYDROMORPHONE HYDROCHLORIDE
     Dosage: 1.956 MG, \DAY
     Route: 037
     Dates: start: 20120802, end: 20130916
  42. BUPIVICAINE [Suspect]
     Active Substance: BUPIVACAINE
     Dosage: 8.108 MG, \DAY
     Route: 037
     Dates: start: 20110121, end: 20111229
  43. BUPIVICAINE [Suspect]
     Active Substance: BUPIVACAINE
     Dosage: 11.015 MG, \DAY
     Route: 037
     Dates: start: 20111229, end: 20120802
  44. BUPIVICAINE [Suspect]
     Active Substance: BUPIVACAINE
     Dosage: 16.790 MG, \DAY
     Route: 037
     Dates: start: 20111229, end: 20120802
  45. CLONIDINE. [Suspect]
     Active Substance: CLONIDINE
     Dosage: 97.84 ?G, \DAY
     Route: 037
     Dates: start: 20120323, end: 20120802
  46. DILAUDID [Suspect]
     Active Substance: HYDROMORPHONE HYDROCHLORIDE
     Dosage: 1.972 MG, \DAY
     Route: 037
     Dates: start: 20130916, end: 20130923
  47. CLONIDINE. [Suspect]
     Active Substance: CLONIDINE
     Dosage: 55.08 ?G, \DAY
     Route: 037
     Dates: start: 20120802, end: 20130916
  48. CLONIDINE. [Suspect]
     Active Substance: CLONIDINE
     Dosage: 109.02 ?G, \DAY
     Route: 037
     Dates: start: 20130923
  49. COMPOUNDED BACLOFEN [Suspect]
     Active Substance: BACLOFEN
     Dosage: 71.12 ?G, \DAY
     Route: 037
     Dates: start: 20101104, end: 20110121
  50. COMPOUNDED BACLOFEN [Suspect]
     Active Substance: BACLOFEN
     Dosage: 40.54 ?G, \DAY
     Route: 037
     Dates: start: 20110121, end: 20111229
  51. DILAUDID [Suspect]
     Active Substance: HYDROMORPHONE HYDROCHLORIDE
     Dosage: 0.810 MG, \DAY
     Route: 037
     Dates: start: 20110121, end: 20111229
  52. BUPIVICAINE [Suspect]
     Active Substance: BUPIVACAINE
     Dosage: 21.805 MG, \DAY
     Route: 037
     Dates: start: 20130923
  53. CLONIDINE. [Suspect]
     Active Substance: CLONIDINE
     Dosage: 40.54 ?G, \DAY
     Route: 037
     Dates: start: 20110121, end: 20111229

REACTIONS (2)
  - Implant site pain [Recovered/Resolved]
  - Implant site swelling [Recovered/Resolved]

NARRATIVE: CASE EVENT DATE: 20110121
